FAERS Safety Report 4736824-0 (Version None)
Quarter: 2005Q3

REPORT INFORMATION
  Report Type: 
  Country: None (occurrence: None)
  Receive Date: 20050808
  Receipt Date: 20050725
  Transmission Date: 20060218
  Serious: Yes (Other)
  Sender: FDA-Public Use
  Company Number: 2005AC01115

PATIENT
  Age: 43 Year
  Sex: Female
  Weight: 71 kg

DRUGS (4)
  1. LIDOCAINE [Suspect]
     Indication: ANAESTHESIA
     Route: 008
  2. BUPIVACAINE [Suspect]
     Indication: ANAESTHESIA
     Route: 008
  3. BUPIVACAINE [Suspect]
     Route: 008
  4. FENTANYL [Suspect]
     Indication: ANAESTHESIA
     Dosage: 100 UG GIVEN THROUGH CATHETER TWICE AT 45 MIN INTERVALS
     Route: 008

REACTIONS (6)
  - ALLODYNIA [None]
  - ARACHNOIDITIS [None]
  - CATHETER RELATED COMPLICATION [None]
  - HYPERAESTHESIA [None]
  - MUSCLE CONTRACTIONS INVOLUNTARY [None]
  - PARAESTHESIA [None]
